FAERS Safety Report 12663168 (Version 1)
Quarter: 2016Q3

REPORT INFORMATION
  Report Type: Spontaneous
  Country: US (occurrence: None)
  Receive Date: 20160817
  Receipt Date: 20160817
  Transmission Date: 20161109
  Serious: Yes (Hospitalization)
  Sender: FDA-Public Use
  Company Number: None

PATIENT
  Age: 74 Year
  Sex: Male
  Weight: 108.41 kg

DRUGS (11)
  1. FERROUS SULFATE. [Concomitant]
     Active Substance: FERROUS SULFATE
  2. SIMVASTATIN. [Concomitant]
     Active Substance: SIMVASTATIN
  3. HCTZ [Concomitant]
     Active Substance: HYDROCHLOROTHIAZIDE
  4. APAP [Concomitant]
     Active Substance: ACETAMINOPHEN
  5. IBUPROFEN. [Concomitant]
     Active Substance: IBUPROFEN
  6. ENLAPRIL [Concomitant]
     Active Substance: ENALAPRIL
  7. ENOZAPRIN [Concomitant]
  8. DOCUSATE [Concomitant]
     Active Substance: DOCUSATE
  9. TAMSULOSIN [Concomitant]
     Active Substance: TAMSULOSIN
  10. ASA [Concomitant]
     Active Substance: ASPIRIN
  11. CLINDAMYCIN [Suspect]
     Active Substance: CLINDAMYCIN\CLINDAMYCIN PHOSPHATE
     Indication: KNEE ARTHROPLASTY
     Route: 048
     Dates: start: 20160610, end: 20160610

REACTIONS (2)
  - Lip swelling [None]
  - Post procedural complication [None]

NARRATIVE: CASE EVENT DATE: 20160610
